FAERS Safety Report 6973439-8 (Version None)
Quarter: 2010Q3

REPORT INFORMATION
  Report Type: 
  Country: None (occurrence: None)
  Receive Date: 20100909
  Receipt Date: 20100830
  Transmission Date: 20110219
  Serious: Yes (Other)
  Sender: FDA-Public Use
  Company Number: JP-MERCK-1007USA01942

PATIENT
  Age: 37 Year
  Sex: Female

DRUGS (7)
  1. PEPCID RPD [Suspect]
     Indication: REFLUX OESOPHAGITIS
     Route: 048
     Dates: start: 20100410, end: 20100729
  2. LASIX [Concomitant]
     Indication: OEDEMA PERIPHERAL
     Route: 065
     Dates: start: 20100713, end: 20100729
  3. LASIX [Concomitant]
     Indication: HYPERTENSION
     Route: 065
     Dates: start: 20100713, end: 20100729
  4. CELECOX [Suspect]
     Indication: SPINAL OSTEOARTHRITIS
     Route: 048
     Dates: start: 20100406, end: 20100712
  5. NORVASC [Concomitant]
     Indication: HYPERTENSION
     Route: 048
     Dates: start: 20100410, end: 20100729
  6. KEISHI-KA-SHAKUYAKU-DAIO-TO [Concomitant]
     Indication: MUSCLE SPASMS
     Route: 048
     Dates: start: 20100510, end: 20100729
  7. MUCOSTA [Concomitant]
     Indication: GASTRITIS
     Route: 065
     Dates: start: 20100410, end: 20100702

REACTIONS (1)
  - DEEP VEIN THROMBOSIS [None]
